FAERS Safety Report 18220940 (Version 2)
Quarter: 2021Q2

REPORT INFORMATION
  Report Type: Spontaneous
  Country: US (occurrence: US)
  Receive Date: 20200902
  Receipt Date: 20210629
  Transmission Date: 20210717
  Serious: No
  Sender: FDA-Public Use
  Company Number: US-SA-2020SA237219

PATIENT
  Age: 76 Year
  Sex: Female

DRUGS (2)
  1. ZINC. [Concomitant]
     Active Substance: ZINC
  2. DUPIXENT [Suspect]
     Active Substance: DUPILUMAB
     Indication: DERMATITIS ATOPIC
     Dosage: 300 MG, QOW
     Route: 058

REACTIONS (3)
  - Eye disorder [Unknown]
  - Erythema [Unknown]
  - Conjunctivitis [Unknown]

NARRATIVE: CASE EVENT DATE: 202008
